FAERS Safety Report 25760182 (Version 1)
Quarter: 2025Q3

REPORT INFORMATION
  Report Type: Spontaneous
  Country: US (occurrence: US)
  Receive Date: 20250904
  Receipt Date: 20250904
  Transmission Date: 20251021
  Serious: Yes (Other)
  Sender: AMGEN
  Company Number: US-AMGEN-USASP2025143651

PATIENT

DRUGS (4)
  1. CARFILZOMIB [Suspect]
     Active Substance: CARFILZOMIB
     Indication: Plasma cell myeloma refractory
     Route: 040
  2. ELRANATAMAB [Suspect]
     Active Substance: ELRANATAMAB
     Indication: Plasma cell myeloma refractory
     Route: 058
  3. DEXAMETHASONE [Suspect]
     Active Substance: DEXAMETHASONE
     Indication: Plasma cell myeloma refractory
     Dosage: 40 MILLIGRAM, QWK
     Route: 048
  4. DEXAMETHASONE [Suspect]
     Active Substance: DEXAMETHASONE
     Dosage: 40 MILLIGRAM, QWK
     Route: 040

REACTIONS (16)
  - Cytokine release syndrome [Unknown]
  - Cytomegalovirus infection reactivation [Unknown]
  - Neutropenia [Unknown]
  - Thrombocytopenia [Unknown]
  - Leukopenia [Unknown]
  - Pulmonary embolism [Unknown]
  - Cough [Unknown]
  - Diarrhoea [Unknown]
  - Infection [Unknown]
  - Blood alkaline phosphatase increased [Unknown]
  - Injection site reaction [Unknown]
  - Fatigue [Unknown]
  - Anaemia [Unknown]
  - Oedema peripheral [Unknown]
  - Therapy partial responder [Unknown]
  - Lymphopenia [Unknown]
